FAERS Safety Report 5317355-6 (Version None)
Quarter: 2007Q2

REPORT INFORMATION
  Report Type: 
  Country: None (occurrence: None)
  Receive Date: 20070504
  Receipt Date: 20070425
  Transmission Date: 20071010
  Serious: Yes (Death, Life-Threatening, Hospitalization)
  Sender: FDA-Public Use
  Company Number: GR-GENENTECH-240540

PATIENT
  Age: 25 Year
  Sex: Male

DRUGS (9)
  1. NUTROPIN AQ [Suspect]
     Indication: DRUG USE FOR UNKNOWN INDICATION
  2. TESTIM GEL [Concomitant]
     Indication: DRUG USE FOR UNKNOWN INDICATION
     Dosage: 2 G, Q WEEK
  3. CLOMIFENE [Concomitant]
     Indication: DRUG USE FOR UNKNOWN INDICATION
  4. TAMOXIFEN CITRATE [Concomitant]
     Indication: DRUG USE FOR UNKNOWN INDICATION
  5. PAROXETINE [Concomitant]
     Indication: DRUG USE FOR UNKNOWN INDICATION
  6. AMINO ACIDS [Concomitant]
     Indication: DRUG USE FOR UNKNOWN INDICATION
  7. CHLORPROMAZINE [Concomitant]
     Indication: DRUG USE FOR UNKNOWN INDICATION
  8. HALOPERIDOL [Concomitant]
     Indication: DRUG USE FOR UNKNOWN INDICATION
  9. LORAZEPAM [Concomitant]
     Indication: DRUG USE FOR UNKNOWN INDICATION

REACTIONS (3)
  - AFFECTIVE DISORDER [None]
  - COMPLETED SUICIDE [None]
  - DEPRESSION [None]
